FAERS Safety Report 4409764-4 (Version None)
Quarter: 2004Q3

REPORT INFORMATION
  Report Type: 
  Country: None (occurrence: None)
  Receive Date: 20040727
  Receipt Date: 20040727
  Transmission Date: 20050211
  Serious: Yes (Other)
  Sender: FDA-Public Use
  Company Number: None

PATIENT
  Sex: Female
  Weight: 99.7913 kg

DRUGS (3)
  1. PAXIL [Suspect]
     Indication: BIPOLAR II DISORDER
     Dosage: 20MG  3X PER DAY  ORAL
     Route: 048
     Dates: start: 19990801, end: 20040715
  2. PAXIL [Suspect]
     Indication: SELF INJURIOUS BEHAVIOUR
     Dosage: 20MG  3X PER DAY  ORAL
     Route: 048
     Dates: start: 19990801, end: 20040715
  3. PAXIL [Suspect]
     Indication: SOCIAL PHOBIA
     Dosage: 20MG  3X PER DAY  ORAL
     Route: 048
     Dates: start: 19990801, end: 20040715

REACTIONS (17)
  - ABNORMAL DREAMS [None]
  - ACTIVITIES OF DAILY LIVING IMPAIRED [None]
  - AGGRESSION [None]
  - ANGER [None]
  - DEPERSONALISATION [None]
  - DEPRESSED MOOD [None]
  - DRUG WITHDRAWAL SYNDROME [None]
  - EYE MOVEMENT DISORDER [None]
  - GAIT DISTURBANCE [None]
  - HALLUCINATION [None]
  - HYPOAESTHESIA [None]
  - MOOD ALTERED [None]
  - NIGHT SWEATS [None]
  - RESTLESSNESS [None]
  - SUICIDAL IDEATION [None]
  - THINKING ABNORMAL [None]
  - VISION BLURRED [None]
